FAERS Safety Report 14449673 (Version 6)
Quarter: 2019Q1

REPORT INFORMATION
  Report Type: Report from Study
  Country: CO (occurrence: CO)
  Receive Date: 20180128
  Receipt Date: 20190114
  Transmission Date: 20190417
  Serious: Yes (Life-Threatening, Other)
  Sender: FDA-Public Use
  Company Number: PHHY2016CO072090

PATIENT
  Age: 52 Year
  Sex: Female
  Weight: 59 kg

DRUGS (11)
  1. AFINITOR [Suspect]
     Active Substance: EVEROLIMUS
     Dosage: 0.5 DF, UNK
     Route: 048
  2. IRUXOL [Concomitant]
     Indication: PRODUCT USED FOR UNKNOWN INDICATION
     Dosage: UNK
     Route: 065
  3. AFINITOR [Suspect]
     Active Substance: EVEROLIMUS
     Indication: BREAST CANCER METASTATIC
     Dosage: 10 MG, UNK
     Route: 048
     Dates: start: 20160503, end: 20160519
  4. PYRALVEX [Suspect]
     Active Substance: RHUBARB\SALICYLIC ACID
     Indication: ORAL MUCOSAL EXFOLIATION
     Route: 065
  5. CALTRATE PLUS WITH VITAMIN D AND MINERALS [Suspect]
     Active Substance: CALCIUM\CHOLECALCIFEROL\COPPER\MAGNESIUM\MANGANESE\ZINC
     Indication: PRODUCT USED FOR UNKNOWN INDICATION
     Route: 065
  6. NAPROXEN. [Suspect]
     Active Substance: NAPROXEN
     Indication: PRODUCT USED FOR UNKNOWN INDICATION
     Dosage: UNK
     Route: 065
  7. AFINITOR [Suspect]
     Active Substance: EVEROLIMUS
     Dosage: 10 MG, QD
     Route: 048
     Dates: start: 20160527
  8. AFINITOR [Suspect]
     Active Substance: EVEROLIMUS
     Dosage: 10 MG, QD (SHE TOOK FOR 2 DAYS AND NOT TAKING FOR OTHER 2 DAYS)
     Route: 048
     Dates: start: 20160608
  9. ATORVASTATIN [Suspect]
     Active Substance: ATORVASTATIN
     Indication: PRODUCT USED FOR UNKNOWN INDICATION
     Dosage: UNK
     Route: 065
  10. CEPHALEXIN. [Concomitant]
     Active Substance: CEPHALEXIN
     Indication: INFECTION
     Dosage: 1 DF, Q8H
     Route: 065
  11. EXEMESTANE. [Suspect]
     Active Substance: EXEMESTANE
     Indication: BREAST CANCER METASTATIC
     Dosage: 25 MG, QD
     Route: 048
     Dates: start: 20160504

REACTIONS (32)
  - Rash [Unknown]
  - Burning sensation [Unknown]
  - Pruritus [Unknown]
  - Breast ulceration [Recovering/Resolving]
  - Skin irritation [Unknown]
  - Fall [Unknown]
  - Malaise [Unknown]
  - Swelling face [Unknown]
  - Injury [Unknown]
  - Inflammation [Not Recovered/Not Resolved]
  - Headache [Unknown]
  - Decreased appetite [Unknown]
  - Oral mucosal exfoliation [Unknown]
  - Feeding disorder [Recovering/Resolving]
  - Hypersensitivity [Unknown]
  - Discomfort [Not Recovered/Not Resolved]
  - Phobia [Unknown]
  - Wrong technique in product usage process [Unknown]
  - Postoperative wound complication [Recovering/Resolving]
  - Fluid retention [Unknown]
  - Acne [Unknown]
  - Oral mucosal blistering [Unknown]
  - Dry skin [Unknown]
  - Asthenia [Unknown]
  - Drug intolerance [Unknown]
  - Breast disorder [Unknown]
  - Oral discomfort [Unknown]
  - Weight decreased [Unknown]
  - Speech disorder [Unknown]
  - Oral pain [Unknown]
  - Underdose [Unknown]
  - Inappropriate schedule of product administration [Unknown]

NARRATIVE: CASE EVENT DATE: 20160510
